FAERS Safety Report 9071043 (Version 1)
Quarter: 2013Q1

REPORT INFORMATION
  Report Type: Spontaneous
  Country: US (occurrence: US)
  Receive Date: 20130206
  Receipt Date: 20130206
  Transmission Date: 20140127
  Serious: No
  Sender: FDA-Public Use
  Company Number: US-ALLERGAN-1208228US

PATIENT
  Age: 61 Year
  Sex: Female

DRUGS (3)
  1. RESTASIS? [Suspect]
     Indication: DRY EYE
     Dosage: 2 GTT, UNK
  2. BAUSCH AND LOMB EYE DROPS [Concomitant]
     Indication: DRY EYE
     Dosage: UNK
  3. BAUSCH AND LOMB EYE OINTMENT [Concomitant]
     Indication: DRY EYE
     Dosage: UNK

REACTIONS (3)
  - Inappropriate schedule of drug administration [Unknown]
  - Wrong technique in drug usage process [Unknown]
  - Drug ineffective [Unknown]
